FAERS Safety Report 7000088-8 (Version None)
Quarter: 2010Q3

REPORT INFORMATION
  Report Type: 
  Country: None (occurrence: None)
  Receive Date: 20100920
  Receipt Date: 20100907
  Transmission Date: 20110219
  Serious: Yes (Hospitalization)
  Sender: FDA-Public Use
  Company Number: US-ELI_LILLY_AND_COMPANY-US201009001815

PATIENT
  Age: 64 Year
  Sex: Male
  Weight: 92.8 kg

DRUGS (11)
  1. GEMCITABINE HCL [Suspect]
     Indication: TRANSITIONAL CELL CARCINOMA
     Dosage: 1720 MG, OTHER
     Route: 042
     Dates: start: 20100413, end: 20100520
  2. GEMCITABINE HCL [Suspect]
     Dosage: 1280 MG, UNK
     Route: 042
     Dates: start: 20100610, end: 20100802
  3. GEMCITABINE HCL [Suspect]
     Dosage: 1280 MG, OTHER
     Route: 042
     Dates: start: 20100817
  4. SUNITINIB MALATE [Suspect]
     Indication: TRANSITIONAL CELL CARCINOMA
     Dosage: 37.5 MG, DAILY (1/D)
     Route: 048
     Dates: start: 20100413, end: 20100425
  5. SUNITINIB MALATE [Suspect]
     Dosage: 25 MG, DAILY (1/D)
     Route: 048
     Dates: start: 20100513, end: 20100623
  6. CISPLATIN [Suspect]
     Indication: TRANSITIONAL CELL CARCINOMA
     Dosage: 129 MG, OTHER
     Route: 042
     Dates: start: 20100413, end: 20100802
  7. COLACE [Concomitant]
     Dates: start: 20070515
  8. LEVOTHYROXINE [Concomitant]
     Dates: start: 20000615
  9. ZOMETA [Concomitant]
     Dates: start: 20100413
  10. LISINOPRIL [Concomitant]
  11. ALLOPURINOL [Concomitant]
     Dates: start: 19980615

REACTIONS (1)
  - CELLULITIS [None]
